FAERS Safety Report 5207527-3 (Version None)
Quarter: 2006Q4

REPORT INFORMATION
  Report Type: 
  Country: None (occurrence: None)
  Receive Date: 20061030
  Receipt Date: 20060212
  Transmission Date: 20070319
  Serious: No
  Sender: FDA-Public Use
  Company Number: 2006CT000616

PATIENT
  Sex: Female
  Weight: 23.1334 kg

DRUGS (15)
  1. VENTAVIS [Suspect]
     Indication: PULMONARY HYPERTENSION
     Dosage: 2. UG; 6TO9X/DAY; INH; SEE IMAGE
     Route: 055
     Dates: start: 20060216, end: 20060426
  2. VENTAVIS [Suspect]
     Indication: PULMONARY HYPERTENSION
     Dosage: 2. UG; 6TO9X/DAY; INH; SEE IMAGE
     Route: 055
     Dates: start: 20050525
  3. SILDENAFIL CITRATE [Suspect]
     Indication: PULMONARY HYPERTENSION
     Dosage: 10 MG; 3X/DAY
  4. WARFARIN SODIUM [Concomitant]
  5. AMOXICILLIN TRIHYDRATE [Concomitant]
  6. DIGOXIN [Concomitant]
  7. FUROSEMIDE [Concomitant]
  8. TRACLEER [Concomitant]
  9. RANITIDINE [Concomitant]
  10. ASPIRIN [Concomitant]
  11. BECLOMETHASONE DIPROPIONATE [Concomitant]
  12. ALBUTEROL [Concomitant]
  13. XOPENEX [Concomitant]
  14. OXYGEN [Concomitant]
  15. IBUPROFEN [Concomitant]

REACTIONS (5)
  - DRUG INEFFECTIVE [None]
  - EYE PAIN [None]
  - MIGRAINE [None]
  - PHARYNGOLARYNGEAL PAIN [None]
  - VISION BLURRED [None]
